FAERS Safety Report 24782721 (Version 1)
Quarter: 2024Q4

REPORT INFORMATION
  Report Type: Spontaneous
  Country: CN (occurrence: CN)
  Receive Date: 20241227
  Receipt Date: 20241227
  Transmission Date: 20250115
  Serious: Yes (Hospitalization)
  Sender: PFIZER
  Company Number: CN-PFIZER INC-PV202400167946

PATIENT
  Age: 34 Year
  Sex: Female

DRUGS (2)
  1. METHOTREXATE SODIUM [Suspect]
     Active Substance: METHOTREXATE SODIUM
     Indication: Placenta accreta
     Dosage: 50 MG, 1X/DAY
     Route: 030
     Dates: start: 20241213, end: 20241213
  2. METHOTREXATE SODIUM [Suspect]
     Active Substance: METHOTREXATE SODIUM
     Indication: Neoplasm

REACTIONS (24)
  - Renal impairment [Unknown]
  - Rash [Unknown]
  - Laryngopharyngitis [Unknown]
  - Hepatic function abnormal [Unknown]
  - Anaemia [Unknown]
  - Vomiting [Unknown]
  - Feeling cold [Recovering/Resolving]
  - Nausea [Unknown]
  - Malaise [Unknown]
  - Oropharyngeal pain [Unknown]
  - Oral herpes [Unknown]
  - Dysphagia [Unknown]
  - Rash pruritic [Unknown]
  - Depressed mood [Unknown]
  - Upper respiratory tract congestion [Unknown]
  - Facial pain [Unknown]
  - Tonsillar ulcer [Unknown]
  - Palatal ulcer [Unknown]
  - Ear congestion [Unknown]
  - Otorrhoea [Unknown]
  - Tympanic membrane disorder [Unknown]
  - Rash papular [Unknown]
  - Erythema [Unknown]
  - Scab [Unknown]

NARRATIVE: CASE EVENT DATE: 20241213
